FAERS Safety Report 10580383 (Version 1)
Quarter: 2014Q4

REPORT INFORMATION
  Report Type: Spontaneous
  Country: KR (occurrence: KR)
  Receive Date: 20141112
  Receipt Date: 20141112
  Transmission Date: 20150529
  Serious: Yes (Death, Hospitalization)
  Sender: FDA-Public Use
  Company Number: PHHY2014KR145552

PATIENT
  Age: 75 Year
  Sex: Female
  Weight: 44 kg

DRUGS (9)
  1. NEOSTIGMINE [Concomitant]
     Active Substance: NEOSTIGMINE
     Indication: NEUROMUSCULAR BLOCKADE
     Dosage: 1.5 MG, UNK
     Route: 065
  2. GLYCOPYRROLATE. [Concomitant]
     Active Substance: GLYCOPYRROLATE
     Indication: NEUROMUSCULAR BLOCKADE
     Dosage: 0.2 MG, UNK
     Route: 030
  3. REMIFENTANIL [Suspect]
     Active Substance: REMIFENTANIL
     Indication: GENERAL ANAESTHESIA
     Dosage: 0.05 UG/KG, PER MINUTE
     Route: 042
  4. ROCURONIUM BROMIDE. [Suspect]
     Active Substance: ROCURONIUM BROMIDE
     Indication: GENERAL ANAESTHESIA
     Dosage: 35 MG, UNK
     Route: 065
  5. GLYCOPYRROLATE. [Concomitant]
     Active Substance: GLYCOPYRROLATE
     Dosage: 0.4 MG, UNK
     Route: 065
  6. RED BLOOD CELLS [Concomitant]
     Active Substance: HUMAN RED BLOOD CELL
     Indication: HAEMORRHAGE
     Route: 065
  7. PENTOTHAL [Suspect]
     Active Substance: THIOPENTAL SODIUM
     Indication: GENERAL ANAESTHESIA
     Dosage: 175 MG, UNK
     Route: 065
  8. DESFLURANE. [Suspect]
     Active Substance: DESFLURANE
     Indication: ANAESTHESIA
     Route: 065
  9. PHENYLEPHRINE [Concomitant]
     Active Substance: PHENYLEPHRINE\PHENYLEPHRINE HYDROCHLORIDE
     Indication: BLOOD PRESSURE SYSTOLIC
     Dosage: 50 UG, PER MINUTE
     Route: 042

REACTIONS (26)
  - Muscular weakness [Recovering/Resolving]
  - Respiratory muscle weakness [Unknown]
  - Hypophagia [Unknown]
  - Blood pressure increased [Unknown]
  - Tachycardia [Unknown]
  - Central nervous system lesion [Unknown]
  - Hypokinesia [Recovering/Resolving]
  - Nausea [Unknown]
  - Pneumonia [Fatal]
  - Acquired porphyria [Unknown]
  - Dyskinesia [Recovering/Resolving]
  - Epilepsy [Unknown]
  - Mental status changes [Unknown]
  - Peripheral sensory neuropathy [Recovering/Resolving]
  - Hyponatraemia [Unknown]
  - Neuropathy peripheral [Recovering/Resolving]
  - Axonal neuropathy [Recovering/Resolving]
  - Autonomic nervous system imbalance [Unknown]
  - Abdominal pain [Unknown]
  - General physical health deterioration [Unknown]
  - Cardiopulmonary failure [Fatal]
  - Somnolence [Unknown]
  - Dyspnoea [Unknown]
  - Nervous system disorder [Recovering/Resolving]
  - Lung infection [Unknown]
  - Respiratory failure [Unknown]
